FAERS Safety Report 7948427-5 (Version None)
Quarter: 2011Q4

REPORT INFORMATION
  Report Type: 
  Country: None (occurrence: None)
  Receive Date: 20111130
  Receipt Date: 20110816
  Transmission Date: 20120403
  Serious: Yes (Death, Other)
  Sender: FDA-Public Use
  Company Number: US-BAYER-200939440NA

PATIENT
  Age: 73 Year
  Sex: Male
  Weight: 100 kg

DRUGS (33)
  1. TRASYLOL [Suspect]
     Indication: CORONARY ARTERY BYPASS
     Dosage: 200 ML
     Route: 042
     Dates: start: 20040220, end: 20040220
  2. ACETYLSALICYLIC ACID SRT [Concomitant]
     Dosage: 650MG Q6H
     Route: 048
  3. LASIX [Concomitant]
     Dosage: 40 MG, BID
     Route: 048
  4. COUMADIN [Concomitant]
  5. PRIMACOR [Concomitant]
     Dosage: UNK
     Route: 042
     Dates: start: 20040220, end: 20040220
  6. NITROGLYCERIN [Concomitant]
     Route: 042
  7. ISOSORBIDE DINITRATE [Concomitant]
     Dosage: 20 MG, TID
     Route: 048
  8. ALBUMIN HUMAN [ALBUMEN] [Concomitant]
     Dosage: UNK
     Dates: start: 20040220
  9. MIDAZOLAM [Concomitant]
     Dosage: 4 MG, UNK
     Route: 042
  10. INSULIN [Concomitant]
     Dosage: UNK
     Route: 042
     Dates: start: 20040220, end: 20040220
  11. PROTAMINE SULFATE [Concomitant]
  12. MORPHINE [Concomitant]
     Dosage: 2 MG, UNK
     Route: 042
     Dates: start: 20040217
  13. METOPROLOL TARTRATE [Concomitant]
     Dosage: 25MG TWICE DAILY
  14. AMIODARONE HCL [Concomitant]
     Dosage: UNK
     Route: 042
     Dates: start: 20040220, end: 20040220
  15. TRASYLOL [Suspect]
     Indication: ADHESIOLYSIS
     Dosage: 1 ML
     Route: 042
     Dates: start: 20040220, end: 20040220
  16. METOPROLOL TARTRATE [Concomitant]
     Dosage: 75 MG, QD
     Route: 048
  17. LIDOCAINE [Concomitant]
     Dosage: 100 MG, UNK
     Route: 042
     Dates: start: 20040220, end: 20040220
  18. ALDACTONE [Concomitant]
     Dosage: UNK
     Route: 048
     Dates: end: 20040213
  19. POTASSIUM CHLORIDE [Concomitant]
     Dosage: 20 MEQ, QD
     Route: 048
  20. TRASYLOL [Suspect]
     Dosage: 50 ML/HOUR
     Route: 042
     Dates: start: 20040220, end: 20040220
  21. INS [INSULIN] [Concomitant]
  22. ZESTRIL [Concomitant]
     Dosage: 10 MG, QD
     Route: 048
  23. HEPARIN [Concomitant]
     Dosage: 38000 U, UNK
     Route: 042
     Dates: start: 20040220, end: 20040220
  24. LISINOPRIL [Concomitant]
     Indication: HYPERTENSION
     Dosage: 40 MG, QD
     Route: 048
  25. RED BLOOD CELLS, LEUCOCYTE DEPLETED [Concomitant]
  26. PANCURON [Concomitant]
     Dosage: 10 MG, UNK
     Route: 042
     Dates: start: 20040220, end: 20040220
  27. VERSED [Concomitant]
     Dosage: 1 MG, UNK
     Route: 042
     Dates: start: 20040217
  28. FAMOTIDINE [Concomitant]
     Indication: GASTRIC DISORDER
     Dosage: 20 MG, QD
     Route: 048
  29. DIGOXIN [Concomitant]
     Route: 048
  30. ISORDIL [Concomitant]
  31. LOVASTATIN [Concomitant]
     Dosage: 20 MG, UNK
     Route: 048
  32. FENTANYL-100 [Concomitant]
     Dosage: 45 MG, UNK
     Route: 042
     Dates: start: 20040220, end: 20040220
  33. CORLOPAM [Concomitant]
     Dosage: UNK
     Route: 042
     Dates: start: 20040220, end: 20040220

REACTIONS (13)
  - RENAL FAILURE [None]
  - INJURY [None]
  - RENAL INJURY [None]
  - MULTI-ORGAN FAILURE [None]
  - FEAR [None]
  - RENAL IMPAIRMENT [None]
  - STRESS [None]
  - ANXIETY [None]
  - PAIN [None]
  - EMOTIONAL DISTRESS [None]
  - UNEVALUABLE EVENT [None]
  - DEATH [None]
  - ANHEDONIA [None]
